FAERS Safety Report 7632698-9 (Version None)
Quarter: 2011Q3

REPORT INFORMATION
  Report Type: 
  Country: None (occurrence: None)
  Receive Date: 20110725
  Receipt Date: 20101202
  Transmission Date: 20111222
  Serious: Yes (Other)
  Sender: FDA-Public Use
  Company Number: US-BRISTOL-MYERS SQUIBB COMPANY-15420029

PATIENT
  Age: 72 Year
  Sex: Male

DRUGS (5)
  1. LISINOPRIL [Concomitant]
  2. AMIODARONE HCL [Concomitant]
  3. WARFARIN SODIUM [Suspect]
     Indication: ATRIAL FIBRILLATION
     Dosage: 3MG TABLETS IN HALF
     Dates: start: 20020101
  4. GRAPEFRUIT [Concomitant]
  5. CRESTOR [Concomitant]

REACTIONS (1)
  - DRUG INEFFECTIVE [None]
